FAERS Safety Report 17510587 (Version 2)
Quarter: 2020Q2

REPORT INFORMATION
  Report Type: Spontaneous
  Country: AU (occurrence: AU)
  Receive Date: 20200306
  Receipt Date: 20200408
  Transmission Date: 20200713
  Serious: Yes (Other)
  Sender: FDA-Public Use
  Company Number: AU-ROCHE-2560960

PATIENT
  Age: 12 Year
  Sex: Male

DRUGS (5)
  1. TRAMETINIB [Suspect]
     Active Substance: TRAMETINIB
     Indication: ASTROCYTOMA, LOW GRADE
     Route: 048
  2. AMLODIPINE [Concomitant]
     Active Substance: AMLODIPINE BESYLATE
  3. MAGNESIUM [Concomitant]
     Active Substance: MAGNESIUM
  4. AVASTIN [Suspect]
     Active Substance: BEVACIZUMAB
     Indication: OPTIC GLIOMA
     Route: 042
  5. CARBOPLATIN. [Suspect]
     Active Substance: CARBOPLATIN
     Indication: PRODUCT USED FOR UNKNOWN INDICATION
     Route: 065

REACTIONS (19)
  - Proteinuria [Unknown]
  - Alopecia [Not Recovered/Not Resolved]
  - Eczema infected [Recovering/Resolving]
  - Hypersensitivity [Unknown]
  - Influenza like illness [Recovered/Resolved]
  - Intentional product use issue [Unknown]
  - Neoplasm progression [Recovering/Resolving]
  - Acne [Recovering/Resolving]
  - Diarrhoea [Recovered/Resolved]
  - Dactylitis [Not Recovered/Not Resolved]
  - Astrocytoma [Unknown]
  - Pyrexia [Unknown]
  - Off label use [Unknown]
  - Blood creatine phosphokinase increased [Not Recovered/Not Resolved]
  - Cough [Recovered/Resolved]
  - Hair colour changes [Unknown]
  - Dry skin [Recovering/Resolving]
  - Epistaxis [Not Recovered/Not Resolved]
  - Rhinorrhoea [Unknown]

NARRATIVE: CASE EVENT DATE: 20180901
